FAERS Safety Report 16039431 (Version 1)
Quarter: 2019Q1

REPORT INFORMATION
  Report Type: Spontaneous
  Country: IT (occurrence: IT)
  Receive Date: 20190306
  Receipt Date: 20190306
  Transmission Date: 20190418
  Serious: Yes (Hospitalization)
  Sender: FDA-Public Use
  Company Number: IT-ASTRAZENECA-2019SE07949

PATIENT
  Age: 70 Year
  Sex: Male

DRUGS (10)
  1. UROREC [Concomitant]
     Active Substance: SILODOSIN
  2. SYMBICORT [Suspect]
     Active Substance: BUDESONIDE\FORMOTEROL FUMARATE DIHYDRATE
     Indication: CHRONIC OBSTRUCTIVE PULMONARY DISEASE
     Dosage: 1645 MCG/INHALATION, DAILY
     Route: 055
     Dates: start: 20170101, end: 20190104
  3. VENTOLIN [Suspect]
     Active Substance: ALBUTEROL SULFATE
     Indication: CHRONIC OBSTRUCTIVE PULMONARY DISEASE
     Dosage: 1000UG/INHAL DAILY
     Route: 055
     Dates: start: 20170101, end: 20190104
  4. ISOPTIN [Concomitant]
     Active Substance: VERAPAMIL HYDROCHLORIDE
  5. LASIX VIAL [Concomitant]
  6. DEURSIL [Concomitant]
     Active Substance: URSODIOL
  7. TRANQUIRIT [Concomitant]
     Active Substance: DIAZEPAM
  8. IPRATROPIUM BROMIDE. [Suspect]
     Active Substance: IPRATROPIUM BROMIDE
     Indication: CHRONIC OBSTRUCTIVE PULMONARY DISEASE
     Route: 055
     Dates: start: 20181225, end: 20190104
  9. DOSBEROTEC [Suspect]
     Active Substance: FENOTEROL HYDROBROMIDE
     Indication: CHRONIC OBSTRUCTIVE PULMONARY DISEASE
     Dosage: 1000UG/INHAL DAILY
     Route: 055
     Dates: start: 20170101, end: 20190104
  10. PANTORC [Concomitant]
     Active Substance: PANTOPRAZOLE SODIUM

REACTIONS (2)
  - Intentional product misuse [Unknown]
  - Tachyarrhythmia [Unknown]

NARRATIVE: CASE EVENT DATE: 20190104
